FAERS Safety Report 17314526 (Version 1)
Quarter: 2020Q1

REPORT INFORMATION
  Report Type: Spontaneous
  Country: US (occurrence: US)
  Receive Date: 20200124
  Receipt Date: 20200124
  Transmission Date: 20200409
  Serious: No
  Sender: FDA-Public Use
  Company Number: US-PCCINC-2019-PEL-000026

PATIENT

DRUGS (4)
  1. BACLOFEN. [Concomitant]
     Active Substance: BACLOFEN
  2. GABLOFEN [Suspect]
     Active Substance: BACLOFEN
     Dosage: 234.7 MCG/DAY
     Route: 037
     Dates: start: 20181129
  3. CLONIDINE                          /00171102/ [Concomitant]
     Active Substance: CLONIDINE
     Indication: BLOOD PRESSURE ABNORMAL
  4. GABLOFEN [Suspect]
     Active Substance: BACLOFEN
     Indication: MUSCLE SPASTICITY
     Dosage: 247.1 MCG/DAY
     Route: 037

REACTIONS (3)
  - Feeling abnormal [Unknown]
  - Frustration tolerance decreased [Unknown]
  - Somnolence [Unknown]
